FAERS Safety Report 7757803-5 (Version None)
Quarter: 2011Q3

REPORT INFORMATION
  Report Type: 
  Country: None (occurrence: None)
  Receive Date: 20110918
  Receipt Date: 20110909
  Transmission Date: 20111222
  Serious: Yes (Other)
  Sender: FDA-Public Use
  Company Number: US-ASTRAZENECA-2011SE54588

PATIENT

DRUGS (4)
  1. ALBUTEROL [Concomitant]
  2. LOSARTAN POTASSIUM [Concomitant]
     Route: 065
  3. SYMBICORT [Suspect]
     Route: 055
  4. HYDROCHLOROTHIAZIDE [Concomitant]
     Route: 065

REACTIONS (3)
  - INTERSTITIAL LUNG DISEASE [None]
  - DYSPNOEA [None]
  - HYPERTENSIVE CRISIS [None]
